FAERS Safety Report 6136804-7 (Version None)
Quarter: 2009Q1

REPORT INFORMATION
  Report Type: 
  Country: None (occurrence: None)
  Receive Date: 20090325
  Receipt Date: 20090314
  Transmission Date: 20090719
  Serious: Yes (Death, Hospitalization, Other)
  Sender: FDA-Public Use
  Company Number: 2009-01004

PATIENT
  Age: 68 Year
  Sex: Male
  Weight: 75.3 kg

DRUGS (2)
  1. VELCADE [Suspect]
     Indication: HEAD AND NECK CANCER
     Dosage: 1.3 MG/M2, IV BOLUS
     Route: 040
     Dates: start: 20080226, end: 20080306
  2. IRINOTECAN HCL [Suspect]
     Indication: HEAD AND NECK CANCER

REACTIONS (8)
  - BLOOD CREATININE INCREASED [None]
  - DIARRHOEA [None]
  - HAEMODIALYSIS [None]
  - HAEMOGLOBIN DECREASED [None]
  - HYPERNATRAEMIA [None]
  - HYPOKALAEMIA [None]
  - HYPOTENSION [None]
  - RENAL FAILURE [None]
